FAERS Safety Report 9676289 (Version 2)
Quarter: 2014Q2

REPORT INFORMATION
  Report Type: Report from Study
  Country: DE (occurrence: DE)
  Receive Date: 20131107
  Receipt Date: 20140509
  Transmission Date: 20141212
  Serious: Yes (Hospitalization)
  Sender: FDA-Public Use
  Company Number: DE-ABBVIE-13P-062-1164629-00

PATIENT
  Age: 34 Year
  Sex: Male
  Weight: 80 kg

DRUGS (3)
  1. HUMIRA [Suspect]
     Indication: CROHN^S DISEASE
     Route: 058
     Dates: start: 20101022
  2. CHOLESTAGEL [Suspect]
     Indication: BILE ACID MALABSORPTION
     Route: 048
     Dates: start: 201102
  3. COBALAMIN [Concomitant]
     Indication: VITAMIN B12 DEFICIENCY
     Route: 030

REACTIONS (2)
  - Obstruction [Recovered/Resolved]
  - Gastrooesophageal reflux disease [Recovered/Resolved]
